FAERS Safety Report 15022397 (Version 1)
Quarter: 2018Q2

REPORT INFORMATION
  Report Type: Spontaneous
  Country: US (occurrence: US)
  Receive Date: 20180601
  Receipt Date: 20180601
  Transmission Date: 20180711
  Serious: Yes (Other)
  Sender: FDA-Public Use
  Company Number: None

PATIENT
  Age: 22 Year
  Sex: Female

DRUGS (1)
  1. FLUTICASONE. [Suspect]
     Active Substance: FLUTICASONE
     Dosage: ?          OTHER FREQUENCY:1 EN QD X 14 DAYS;?
     Route: 045

REACTIONS (3)
  - Epistaxis [None]
  - Product quality issue [None]
  - Product contamination physical [None]

NARRATIVE: CASE EVENT DATE: 20180402
